FAERS Safety Report 13398332 (Version 2)
Quarter: 2017Q2

REPORT INFORMATION
  Report Type: Spontaneous
  Country: JP (occurrence: JP)
  Receive Date: 20170403
  Receipt Date: 20170517
  Transmission Date: 20170830
  Serious: Yes (Life-Threatening, Hospitalization, Other)
  Sender: FDA-Public Use
  Company Number: PHJP2017JP010949

PATIENT
  Age: 89 Year
  Sex: Female

DRUGS (9)
  1. LYRICA [Suspect]
     Active Substance: PREGABALIN
     Dosage: 125 MG, QD (THREE 25-MG CAPSULES IN THE MORNING AND TWO 25-MG CAPSULES IN THE EVENING)
     Route: 048
     Dates: start: 20150708, end: 20160821
  2. LYRICA [Suspect]
     Active Substance: PREGABALIN
     Dosage: 75 MG, UNK
     Route: 048
     Dates: start: 20140813
  3. LYRICA [Suspect]
     Active Substance: PREGABALIN
     Dosage: 50 MG, UNK
     Route: 048
     Dates: start: 20130403
  4. LYRICA [Suspect]
     Active Substance: PREGABALIN
     Indication: SPONDYLOLISTHESIS
     Dosage: 25 MG, QD
     Route: 048
     Dates: start: 20121003
  5. DIOVAN [Suspect]
     Active Substance: VALSARTAN
     Indication: PRODUCT USED FOR UNKNOWN INDICATION
     Dosage: 80 MG, UNK
     Route: 048
     Dates: start: 20110504, end: 20140724
  6. LYRICA [Suspect]
     Active Substance: PREGABALIN
     Dosage: 50 MG, QD (TWO 25-MG TABLETS)
     Route: 048
     Dates: start: 20161122
  7. LYRICA [Suspect]
     Active Substance: PREGABALIN
     Dosage: 100 MG, UNK
     Route: 048
     Dates: start: 20161224
  8. VALSARTAN. [Suspect]
     Active Substance: VALSARTAN
     Indication: PRODUCT USED FOR UNKNOWN INDICATION
     Dosage: 80 MG, UNK
     Route: 048
     Dates: start: 20140725, end: 20160821
  9. LYRICA [Suspect]
     Active Substance: PREGABALIN
     Dosage: 62.5 MG, BID
     Route: 048

REACTIONS (8)
  - Sinus bradycardia [Unknown]
  - Hyperkalaemia [Recovered/Resolved]
  - Sinus node dysfunction [Recovered/Resolved]
  - Blood sodium decreased [Recovered/Resolved]
  - Spondylolisthesis [Unknown]
  - Hypoaesthesia [Unknown]
  - Blood creatinine increased [Recovered/Resolved]
  - Condition aggravated [Unknown]

NARRATIVE: CASE EVENT DATE: 20160821
